FAERS Safety Report 8059236-3 (Version None)
Quarter: 2012Q1

REPORT INFORMATION
  Report Type: 
  Country: None (occurrence: None)
  Receive Date: 20120113
  Receipt Date: 20111230
  Transmission Date: 20120608
  Serious: Yes (Other)
  Sender: FDA-Public Use
  Company Number: CIP10003162

PATIENT
  Age: 48 Year
  Sex: Male
  Weight: 72.5 kg

DRUGS (4)
  1. REMERON [Concomitant]
  2. PERCOCET [Concomitant]
  3. ACTONEL [Suspect]
     Indication: OSTEOPOROSIS
     Dosage: 35 MG ONCE WEEKLY, ORAL
     Route: 048
     Dates: start: 19960101, end: 20100428
  4. CYMBALTA [Concomitant]

REACTIONS (4)
  - IMPAIRED HEALING [None]
  - BURSITIS [None]
  - FEMUR FRACTURE [None]
  - FALL [None]
